FAERS Safety Report 7451049-6 (Version None)
Quarter: 2011Q2

REPORT INFORMATION
  Report Type: 
  Country: None (occurrence: None)
  Receive Date: 20110429
  Receipt Date: 20110429
  Transmission Date: 20111010
  Serious: Yes (Hospitalization)
  Sender: FDA-Public Use
  Company Number: None

PATIENT
  Age: 66 Year
  Sex: Male

DRUGS (2)
  1. EPOETIN ALFA,RECOMBINANT [Suspect]
     Indication: ANAEMIA
     Dosage: 7000 UNITS OTHER SQ
     Route: 058
     Dates: start: 20110114, end: 20110411
  2. EPOETIN ALFA,RECOMBINANT [Suspect]
     Indication: RENAL FAILURE CHRONIC
     Dosage: 7000 UNITS OTHER SQ
     Route: 058
     Dates: start: 20110114, end: 20110411

REACTIONS (1)
  - HYPERTENSION [None]
